FAERS Safety Report 25316471 (Version 2)
Quarter: 2025Q3

REPORT INFORMATION
  Report Type: Report from Study
  Country: CO (occurrence: CO)
  Receive Date: 20250515
  Receipt Date: 20250803
  Transmission Date: 20251020
  Serious: Yes (Hospitalization, Other)
  Sender: ALEXION PHARMACEUTICALS
  Company Number: CO-AstraZeneca-CH-00866590A

PATIENT
  Age: 85 Year
  Sex: Male

DRUGS (1)
  1. SODIUM ZIRCONIUM CYCLOSILICATE [Suspect]
     Active Substance: SODIUM ZIRCONIUM CYCLOSILICATE
     Indication: Hyperkalaemia
     Dosage: 5 GRAM, QD
     Dates: start: 20250329

REACTIONS (4)
  - Gastrointestinal infection [Unknown]
  - Diarrhoea [Unknown]
  - Dehydration [Unknown]
  - Haematemesis [Unknown]

NARRATIVE: CASE EVENT DATE: 20250428
